FAERS Safety Report 10526280 (Version 1)
Quarter: 2014Q4

REPORT INFORMATION
  Report Type: Spontaneous
  Country: FR (occurrence: FR)
  Receive Date: 20141018
  Receipt Date: 20141018
  Transmission Date: 20150528
  Serious: Yes (Hospitalization)
  Sender: FDA-Public Use
  Company Number: FR-AUROBINDO-AUR-APL-2014-11006

PATIENT
  Age: 36 Year
  Sex: Male
  Weight: 73 kg

DRUGS (3)
  1. RAMIPRIL 5MG [Suspect]
     Active Substance: RAMIPRIL
     Indication: HYPERTENSION
     Dosage: 5 MG, DAILY
     Route: 048
  2. AMLOR [Suspect]
     Active Substance: AMLODIPINE BESYLATE
     Indication: HYPERTENSION
     Dosage: 5 MG, DAILY
     Route: 048
  3. AXITINIB [Suspect]
     Active Substance: AXITINIB
     Indication: RENAL CANCER
     Dosage: 10 UNITS UNSPECIFIED, DAILY
     Route: 048
     Dates: start: 20140902

REACTIONS (1)
  - Motor dysfunction [Recovered/Resolved]

NARRATIVE: CASE EVENT DATE: 20141004
